FAERS Safety Report 25180397 (Version 2)
Quarter: 2025Q2

REPORT INFORMATION
  Report Type: Spontaneous
  Country: US (occurrence: US)
  Receive Date: 20250409
  Receipt Date: 20250512
  Transmission Date: 20250717
  Serious: No
  Sender: GLAUKOS
  Company Number: US-GLK-000628

PATIENT
  Sex: Male

DRUGS (2)
  1. PHOTREXA VISCOUS [Suspect]
     Active Substance: RIBOFLAVIN 5^-PHOSPHATE SODIUM
     Indication: Product used for unknown indication
     Route: 047
  2. PHOTREXA [Suspect]
     Active Substance: RIBOFLAVIN 5^-PHOSPHATE SODIUM
     Indication: Product used for unknown indication
     Route: 047

REACTIONS (2)
  - Syncope [Recovered/Resolved]
  - Procedure aborted [Recovered/Resolved]
